FAERS Safety Report 7111108-4 (Version None)
Quarter: 2010Q4

REPORT INFORMATION
  Report Type: 
  Country: None (occurrence: None)
  Receive Date: 20101118
  Receipt Date: 20101109
  Transmission Date: 20110411
  Serious: Yes (Other)
  Sender: FDA-Public Use
  Company Number: US-ABBOTT-10P-163-0684145-00

PATIENT
  Sex: Male

DRUGS (4)
  1. TRICOR [Suspect]
     Indication: PRODUCT USED FOR UNKNOWN INDICATION
  2. ACTOS [Suspect]
     Indication: PRODUCT USED FOR UNKNOWN INDICATION
  3. AVAPRO [Suspect]
     Indication: PRODUCT USED FOR UNKNOWN INDICATION
  4. PRAVACHOL [Suspect]
     Indication: PRODUCT USED FOR UNKNOWN INDICATION

REACTIONS (3)
  - DEPRESSION [None]
  - ERECTILE DYSFUNCTION [None]
  - RECTAL CANCER STAGE III [None]
